FAERS Safety Report 12981596 (Version 1)
Quarter: 2016Q4

REPORT INFORMATION
  Report Type: Spontaneous
  Country: FR (occurrence: FR)
  Receive Date: 20161129
  Receipt Date: 20161129
  Transmission Date: 20170207
  Serious: Yes (Hospitalization, Other)
  Sender: FDA-Public Use
  Company Number: FR-CLINIGEN GROUP PLC/ CLINIGEN HEALTHCARE LTD-E2B_00003587

PATIENT
  Age: 55 Year
  Sex: Female

DRUGS (7)
  1. CARDIOXANE [Suspect]
     Active Substance: DEXRAZOXANE HYDROCHLORIDE
     Indication: PRODUCT USED FOR UNKNOWN INDICATION
     Dosage: REGIMEN #1
     Route: 042
     Dates: start: 20041228, end: 20041228
  2. KYTRIL [Concomitant]
     Active Substance: GRANISETRON HYDROCHLORIDE
     Dates: start: 20041228
  3. FARMORUBICINE [Suspect]
     Active Substance: EPIRUBICIN HYDROCHLORIDE
     Indication: BREAST CANCER FEMALE
     Dosage: REGIMEN #1
     Route: 048
     Dates: start: 20041228, end: 20041228
  4. FLUOROURACILE [Suspect]
     Active Substance: FLUOROURACIL
     Indication: BREAST CANCER FEMALE
     Dosage: REGIMEN #1
     Route: 042
     Dates: start: 20041228, end: 20041228
  5. ENDOXAN [Suspect]
     Active Substance: CYCLOPHOSPHAMIDE
     Indication: BREAST CANCER FEMALE
     Dosage: REGIMEN #1
     Route: 042
     Dates: start: 20041228, end: 20041228
  6. ZOPHREN [Concomitant]
     Active Substance: ONDANSETRON
     Dates: start: 20041228
  7. STEROID THERAPY [Concomitant]
     Active Substance: UNSPECIFIED INGREDIENT
     Dates: start: 20041228

REACTIONS (7)
  - Respiratory distress [Recovering/Resolving]
  - Altered state of consciousness [Recovering/Resolving]
  - Transaminases increased [Recovered/Resolved]
  - Coma [Recovering/Resolving]
  - Encephalopathy [Recovering/Resolving]
  - Neutropenia [Recovered/Resolved]
  - Somnolence [Recovering/Resolving]

NARRATIVE: CASE EVENT DATE: 200501
